FAERS Safety Report 7228650-8 (Version None)
Quarter: 2011Q1

REPORT INFORMATION
  Report Type: 
  Country: None (occurrence: None)
  Receive Date: 20110117
  Receipt Date: 20110107
  Transmission Date: 20110831
  Serious: No
  Sender: FDA-Public Use
  Company Number: US-BIOGENIDEC-2011BI001138

PATIENT
  Age: 59 Year
  Sex: Female

DRUGS (1)
  1. TYSABRI [Suspect]
     Indication: MULTIPLE SCLEROSIS
     Route: 042
     Dates: start: 20110105

REACTIONS (9)
  - ANXIETY [None]
  - ABDOMINAL DISCOMFORT [None]
  - CONFUSIONAL STATE [None]
  - FATIGUE [None]
  - CHILLS [None]
  - BALANCE DISORDER [None]
  - MUSCULOSKELETAL PAIN [None]
  - PAIN IN EXTREMITY [None]
  - ABNORMAL DREAMS [None]
